FAERS Safety Report 12325490 (Version 11)
Quarter: 2017Q4

REPORT INFORMATION
  Report Type: Spontaneous
  Country: US (occurrence: US)
  Receive Date: 20160502
  Receipt Date: 20171023
  Transmission Date: 20180320
  Serious: Yes (Death, Hospitalization, Other)
  Sender: FDA-Public Use
  Company Number: US-BIOMARINAP-US-2016-109677

PATIENT
  Sex: Female

DRUGS (1)
  1. ALDURAZYME [Suspect]
     Active Substance: LARONIDASE
     Indication: MUCOPOLYSACCHARIDOSIS I
     Dosage: UNK
     Route: 041
     Dates: start: 20100920, end: 20170929

REACTIONS (19)
  - International normalised ratio increased [Unknown]
  - Vomiting [Unknown]
  - End stage renal disease [Unknown]
  - Gastrointestinal inflammation [Recovering/Resolving]
  - Nausea [Unknown]
  - Anaemia [Not Recovered/Not Resolved]
  - Coagulopathy [Not Recovered/Not Resolved]
  - Heart rate increased [Unknown]
  - Intestinal ischaemia [Recovering/Resolving]
  - Gastrointestinal haemorrhage [Not Recovered/Not Resolved]
  - Bacteraemia [Not Recovered/Not Resolved]
  - Hypotension [Unknown]
  - International normalised ratio decreased [Unknown]
  - Death [Fatal]
  - Abdominal pain upper [Unknown]
  - Headache [Unknown]
  - Weight decreased [Unknown]
  - Abdominal discomfort [Unknown]
  - Swelling [Not Recovered/Not Resolved]
